FAERS Safety Report 9198155 (Version 1)
Quarter: 2013Q1

REPORT INFORMATION
  Report Type: Spontaneous
  Country: DE (occurrence: DE)
  Receive Date: 20130329
  Receipt Date: 20130329
  Transmission Date: 20140127
  Serious: Yes (Other)
  Sender: FDA-Public Use
  Company Number: DE-AMGEN-DEUSP2013021489

PATIENT
  Age: 68 Year
  Sex: Female

DRUGS (2)
  1. ENBREL [Suspect]
     Indication: PSORIATIC ARTHROPATHY
     Dosage: 50 MG, 1X/WEEK
     Dates: start: 20070101
  2. PREDNISOLON                        /00016201/ [Concomitant]
     Dosage: 10 MG, UNK

REACTIONS (2)
  - Rheumatoid arthritis [Unknown]
  - Arthropathy [Unknown]
